FAERS Safety Report 20294016 (Version 37)
Quarter: 2024Q4

REPORT INFORMATION
  Report Type: Report from Study
  Country: US (occurrence: US)
  Receive Date: 20220104
  Receipt Date: 20241022
  Transmission Date: 20250114
  Serious: Yes (Death, Hospitalization, Disabling, Other)
  Sender: TAKEDA
  Company Number: US-TAKEDA-2022TUS000322

PATIENT
  Age: 61 Year
  Sex: Female
  Weight: 61.5 kg

DRUGS (104)
  1. TEDUGLUTIDE [Suspect]
     Active Substance: TEDUGLUTIDE
     Indication: Short-bowel syndrome
     Dosage: UNK
     Route: 065
     Dates: start: 202201
  2. TEDUGLUTIDE [Suspect]
     Active Substance: TEDUGLUTIDE
     Indication: Short-bowel syndrome
     Dosage: UNK
     Route: 065
     Dates: start: 202201
  3. TEDUGLUTIDE [Suspect]
     Active Substance: TEDUGLUTIDE
     Indication: Short-bowel syndrome
     Dosage: UNK
     Route: 065
     Dates: start: 202201
  4. TEDUGLUTIDE [Suspect]
     Active Substance: TEDUGLUTIDE
     Indication: Short-bowel syndrome
     Dosage: UNK
     Route: 065
     Dates: start: 202201
  5. TEDUGLUTIDE [Suspect]
     Active Substance: TEDUGLUTIDE
     Indication: Malabsorption
     Dosage: 1.5 MILLIGRAM, QD
     Route: 058
     Dates: start: 20230107
  6. TEDUGLUTIDE [Suspect]
     Active Substance: TEDUGLUTIDE
     Indication: Malabsorption
     Dosage: 1.5 MILLIGRAM, QD
     Route: 058
     Dates: start: 20230107
  7. TEDUGLUTIDE [Suspect]
     Active Substance: TEDUGLUTIDE
     Indication: Malabsorption
     Dosage: 1.5 MILLIGRAM, QD
     Route: 058
     Dates: start: 20230107
  8. TEDUGLUTIDE [Suspect]
     Active Substance: TEDUGLUTIDE
     Indication: Malabsorption
     Dosage: 1.5 MILLIGRAM, QD
     Route: 058
     Dates: start: 20230107
  9. TEDUGLUTIDE [Suspect]
     Active Substance: TEDUGLUTIDE
     Dosage: 1.5 MILLIGRAM, QD
     Route: 058
     Dates: start: 20240221
  10. TEDUGLUTIDE [Suspect]
     Active Substance: TEDUGLUTIDE
     Dosage: 1.5 MILLIGRAM, QD
     Route: 058
     Dates: start: 20240221
  11. TEDUGLUTIDE [Suspect]
     Active Substance: TEDUGLUTIDE
     Dosage: 1.5 MILLIGRAM, QD
     Route: 058
     Dates: start: 20240221
  12. TEDUGLUTIDE [Suspect]
     Active Substance: TEDUGLUTIDE
     Dosage: 1.5 MILLIGRAM, QD
     Route: 058
     Dates: start: 20240221
  13. TEDUGLUTIDE [Suspect]
     Active Substance: TEDUGLUTIDE
     Dosage: 1.5 MILLIGRAM, QD
     Route: 058
  14. TEDUGLUTIDE [Suspect]
     Active Substance: TEDUGLUTIDE
     Dosage: 1.5 MILLIGRAM, QD
     Route: 058
  15. TEDUGLUTIDE [Suspect]
     Active Substance: TEDUGLUTIDE
     Dosage: 1.5 MILLIGRAM, QD
     Route: 058
  16. TEDUGLUTIDE [Suspect]
     Active Substance: TEDUGLUTIDE
     Dosage: 1.5 MILLIGRAM, QD
     Route: 058
  17. TEDUGLUTIDE [Suspect]
     Active Substance: TEDUGLUTIDE
     Dosage: 1.5 MILLIGRAM, QD
     Route: 058
  18. TEDUGLUTIDE [Suspect]
     Active Substance: TEDUGLUTIDE
     Dosage: 1.5 MILLIGRAM, QD
     Route: 058
  19. TEDUGLUTIDE [Suspect]
     Active Substance: TEDUGLUTIDE
     Dosage: 1.5 MILLIGRAM, QD
     Route: 058
  20. TEDUGLUTIDE [Suspect]
     Active Substance: TEDUGLUTIDE
     Dosage: 1.5 MILLIGRAM, QD
     Route: 058
  21. TEDUGLUTIDE [Suspect]
     Active Substance: TEDUGLUTIDE
     Dosage: 1.5 MILLIGRAM, QD
     Route: 058
  22. TEDUGLUTIDE [Suspect]
     Active Substance: TEDUGLUTIDE
     Dosage: 1.5 MILLIGRAM, QD
     Route: 058
  23. TEDUGLUTIDE [Suspect]
     Active Substance: TEDUGLUTIDE
     Dosage: 1.5 MILLIGRAM, QD
     Route: 058
  24. TEDUGLUTIDE [Suspect]
     Active Substance: TEDUGLUTIDE
     Dosage: 1.5 MILLIGRAM, QD
     Route: 058
  25. TEDUGLUTIDE [Suspect]
     Active Substance: TEDUGLUTIDE
     Dosage: 1.5 MILLIGRAM, QD
     Route: 058
  26. TEDUGLUTIDE [Suspect]
     Active Substance: TEDUGLUTIDE
     Dosage: 1.5 MILLIGRAM, QD
     Route: 058
  27. TEDUGLUTIDE [Suspect]
     Active Substance: TEDUGLUTIDE
     Dosage: 1.5 MILLIGRAM, QD
     Route: 058
  28. TEDUGLUTIDE [Suspect]
     Active Substance: TEDUGLUTIDE
     Dosage: 1.5 MILLIGRAM, QD
     Route: 058
  29. DICYCLOMINE HYDROCHLORIDE [Concomitant]
     Active Substance: DICYCLOMINE HYDROCHLORIDE
     Dosage: UNK
     Route: 065
  30. SPIRONOLACTONE [Concomitant]
     Active Substance: SPIRONOLACTONE
     Dosage: UNK
     Route: 065
  31. MIRALAX [Concomitant]
     Active Substance: POLYETHYLENE GLYCOL 3350
     Dosage: UNK
     Route: 065
  32. NIFEDIPINE [Concomitant]
     Active Substance: NIFEDIPINE
     Dosage: UNK
     Route: 065
  33. CALCIUM CARBONATE [Concomitant]
     Active Substance: CALCIUM CARBONATE
     Dosage: UNK
     Route: 065
  34. IRON [Concomitant]
     Active Substance: IRON
     Dosage: UNK
     Route: 065
  35. ONDANSETRON HYDROCHLORIDE [Concomitant]
     Active Substance: ONDANSETRON HYDROCHLORIDE
     Indication: Nausea
     Dosage: 4 MILLIGRAM, Q8HR
     Route: 048
  36. ONDANSETRON HYDROCHLORIDE [Concomitant]
     Active Substance: ONDANSETRON HYDROCHLORIDE
     Indication: Vomiting
  37. PROMETHAZINE HYDROCHLORIDE [Concomitant]
     Active Substance: PROMETHAZINE HYDROCHLORIDE
     Dosage: UNK
     Route: 065
  38. CIPROFLOXACIN [Concomitant]
     Active Substance: CIPROFLOXACIN
     Dosage: UNK
     Route: 065
  39. HEPARIN SODIUM [Concomitant]
     Active Substance: HEPARIN SODIUM
     Dosage: UNK
     Route: 065
  40. LEVOFLOXACIN [Concomitant]
     Active Substance: LEVOFLOXACIN
     Dosage: UNK
     Route: 065
  41. INTRALIPID [Concomitant]
     Active Substance: EGG PHOSPHOLIPIDS\GLYCERIN\SOYBEAN OIL
     Dosage: UNK
     Route: 065
  42. METHOCARBAMOL [Concomitant]
     Active Substance: METHOCARBAMOL
     Dosage: 500 MILLIGRAM, QD
     Route: 048
  43. COREG [Concomitant]
     Active Substance: CARVEDILOL
     Dosage: UNK
     Route: 065
  44. COREG [Concomitant]
     Active Substance: CARVEDILOL
     Dosage: 1 DOSAGE FORM, BID
     Route: 048
     Dates: start: 20230526, end: 20240304
  45. PROLIA [Concomitant]
     Active Substance: DENOSUMAB
     Dosage: UNK
     Route: 065
  46. VANCOMYCIN HYDROCHLORIDE [Concomitant]
     Active Substance: VANCOMYCIN HYDROCHLORIDE
     Dosage: UNK
     Route: 065
  47. KEPPRA [Concomitant]
     Active Substance: LEVETIRACETAM
     Dosage: 500 MILLIGRAM, BID
     Route: 048
     Dates: start: 20230514
  48. CUBICIN [Concomitant]
     Active Substance: DAPTOMYCIN
     Dosage: UNK
     Route: 065
  49. SODIUM CHLORIDE [Concomitant]
     Active Substance: SODIUM CHLORIDE
     Dosage: UNK
     Route: 042
  50. TRALEMENT [Concomitant]
     Active Substance: CUPRIC SULFATE\MANGANESE SULFATE\SELENIOUS ACID\ZINC SULFATE
     Dosage: UNK
     Route: 042
  51. TPN [Concomitant]
     Active Substance: AMINO ACIDS\DEXTROSE\ELECTROLYTES NOS\SOYBEAN OIL
     Dosage: UNK
     Route: 065
  52. TRAZODONE HCL [Concomitant]
     Active Substance: TRAZODONE HYDROCHLORIDE
     Indication: Insomnia
     Dosage: UNK
     Route: 065
  53. TRAZODONE HCL [Concomitant]
     Active Substance: TRAZODONE HYDROCHLORIDE
     Dosage: 50 MILLIGRAM, QD
     Route: 048
     Dates: start: 20200510, end: 20240226
  54. CARAFATE [Concomitant]
     Active Substance: SUCRALFATE
     Dosage: 10 MILLILITER, QID
     Route: 048
  55. LOPRESSOR [Concomitant]
     Active Substance: METOPROLOL TARTRATE
     Dosage: UNK
     Route: 065
  56. CREON [Concomitant]
     Active Substance: PANCRELIPASE AMYLASE\PANCRELIPASE LIPASE\PANCRELIPASE PROTEASE
     Dosage: 1 DOSAGE FORM, TID
     Route: 048
     Dates: start: 20230514
  57. METHADONE HYDROCHLORIDE [Concomitant]
     Active Substance: METHADONE HYDROCHLORIDE
     Dosage: 10 MILLIGRAM
     Route: 042
  58. IMODIUM A-D [Concomitant]
     Active Substance: LOPERAMIDE HYDROCHLORIDE
     Indication: Diarrhoea
     Dosage: UNK
     Route: 065
  59. DILAUDID [Concomitant]
     Active Substance: HYDROMORPHONE HYDROCHLORIDE
     Dosage: 4 MILLIGRAM, Q6HR
     Route: 048
  60. HYDRALAZINE HCL [Concomitant]
     Active Substance: HYDRALAZINE HYDROCHLORIDE
     Dosage: UNK
     Route: 065
  61. HYDRALAZINE HCL [Concomitant]
     Active Substance: HYDRALAZINE HYDROCHLORIDE
     Dosage: 100 MILLIGRAM, TID
     Route: 048
  62. ESTRACE [Concomitant]
     Active Substance: ESTRADIOL
     Dosage: 2 MILLIGRAM, QD
     Route: 048
     Dates: start: 20231214
  63. CYMBALTA [Concomitant]
     Active Substance: DULOXETINE HYDROCHLORIDE
     Dosage: 30 MILLIGRAM, QD
     Route: 048
  64. CYMBALTA [Concomitant]
     Active Substance: DULOXETINE HYDROCHLORIDE
     Dosage: 60 MILLIGRAM, QD
     Route: 048
  65. LOMOTIL [Concomitant]
     Active Substance: ATROPINE SULFATE\DIPHENOXYLATE HYDROCHLORIDE
     Indication: Diarrhoea
     Dosage: 1 DOSAGE FORM, TID
     Route: 048
  66. DEXILANT [Concomitant]
     Active Substance: DEXLANSOPRAZOLE
     Dosage: 60 MILLIGRAM, QD
     Route: 048
     Dates: start: 20230312
  67. DEXILANT [Concomitant]
     Active Substance: DEXLANSOPRAZOLE
     Dosage: 60 MILLIGRAM, QD
     Route: 048
  68. RESTASIS [Concomitant]
     Active Substance: CYCLOSPORINE
     Dosage: 1 DOSAGE FORM, BID
     Route: 047
     Dates: start: 20200312
  69. WELLBUTRIN SR [Concomitant]
     Active Substance: BUPROPION HYDROCHLORIDE
     Dosage: 200 MILLIGRAM, QD
     Route: 048
     Dates: start: 20170210
  70. ENTOCORT EC [Concomitant]
     Active Substance: BUDESONIDE
     Dosage: UNK
     Route: 065
  71. NORVASC [Concomitant]
     Active Substance: AMLODIPINE BESYLATE
     Dosage: UNK
     Route: 065
  72. NORVASC [Concomitant]
     Active Substance: AMLODIPINE BESYLATE
     Dosage: 1 DOSAGE FORM, QD
     Route: 048
     Dates: start: 20190710, end: 20240226
  73. ARIPIPRAZOLE [Concomitant]
     Active Substance: ARIPIPRAZOLE
     Dosage: UNK
     Route: 065
  74. ARIPIPRAZOLE [Concomitant]
     Active Substance: ARIPIPRAZOLE
     Dosage: 2 MILLIGRAM, QD
     Route: 048
  75. DOXAZOSIN MESYLATE [Concomitant]
     Active Substance: DOXAZOSIN MESYLATE
     Dosage: 4 MILLIGRAM
     Route: 048
     Dates: start: 20231121
  76. TYLENOL [Concomitant]
     Active Substance: ACETAMINOPHEN
     Dosage: 2 DOSAGE FORM, Q6HR
     Route: 048
     Dates: start: 20190826, end: 20240316
  77. CALCIUM CARBONATE\CHOLECALCIFEROL [Concomitant]
     Active Substance: CALCIUM CARBONATE\CHOLECALCIFEROL
     Dosage: 1.5 DOSAGE FORM, QD
     Route: 048
  78. VITAMIN D3 [Concomitant]
     Active Substance: CHOLECALCIFEROL
     Dosage: 1 DOSAGE FORM, QD
     Route: 048
     Dates: start: 20200309
  79. VITAMIN B12 [Concomitant]
     Active Substance: CYANOCOBALAMIN
     Dosage: 1000 MICROGRAM, QD
     Route: 048
     Dates: start: 20230312, end: 20240226
  80. NATURAL BALANCE TEARS [Concomitant]
     Active Substance: HYPROMELLOSE 2910 (3 MPA.S)
     Dosage: UNK UNK, QID
     Route: 047
  81. RECLAST [Concomitant]
     Active Substance: ZOLEDRONIC ACID
     Dosage: UNK
     Route: 042
     Dates: start: 20240226
  82. ANUSOL PLUS HC [Concomitant]
     Dosage: UNK UNK, BID
     Route: 054
  83. PEPCID [Concomitant]
     Active Substance: FAMOTIDINE
     Dosage: 20 MILLIGRAM, QD
     Route: 048
     Dates: start: 20240122
  84. NARCAN [Concomitant]
     Active Substance: NALOXONE HYDROCHLORIDE
     Indication: Overdose
     Dosage: UNK
     Route: 045
     Dates: start: 20240122
  85. POLYVINYL ALCOHOL [Concomitant]
     Active Substance: POLYVINYL ALCOHOL
     Dosage: UNK
     Route: 065
  86. OXYCODONE [Concomitant]
     Active Substance: OXYCODONE
     Indication: Pain
     Dosage: 5 MILLIGRAM, Q6HR
     Route: 065
  87. BENTYL [Concomitant]
     Active Substance: DICYCLOMINE HYDROCHLORIDE
     Indication: Muscle spasms
     Dosage: 20 MILLIGRAM, QID
     Route: 048
     Dates: start: 20230727
  88. GENTEAL MILD [Concomitant]
     Active Substance: HYPROMELLOSE 2910 (4000 MPA.S)
     Dosage: 1 DOSAGE FORM, QID
     Route: 047
  89. DEXTROSE [Concomitant]
     Active Substance: DEXTROSE MONOHYDRATE
     Dosage: 500 MILLILITER
     Route: 050
     Dates: start: 20230514
  90. CARDURA [Concomitant]
     Active Substance: DOXAZOSIN MESYLATE
     Dosage: 1 DOSAGE FORM
     Route: 048
     Dates: start: 20231121
  91. FLONASE [Concomitant]
     Active Substance: FLUTICASONE PROPIONATE
     Dosage: UNK UNK, QD
     Route: 045
  92. APRESOLINE HYDROCHLORIDE [Concomitant]
     Active Substance: HYDRALAZINE HYDROCHLORIDE
     Dosage: 1 DOSAGE FORM, TID
     Route: 048
     Dates: start: 20230514
  93. IMDUR [Concomitant]
     Active Substance: ISOSORBIDE MONONITRATE
     Dosage: 1 DOSAGE FORM
     Route: 048
     Dates: start: 20231121
  94. EMLA [Concomitant]
     Active Substance: LIDOCAINE\PRILOCAINE
     Dosage: UNK
     Route: 061
     Dates: start: 20240111
  95. IMODIUM [Concomitant]
     Active Substance: LOPERAMIDE HYDROCHLORIDE
     Dosage: 1 DOSAGE FORM, QID
     Route: 048
     Dates: start: 20230514
  96. ROBAXIN [Concomitant]
     Active Substance: METHOCARBAMOL
     Indication: Muscle spasms
     Dosage: 1 DOSAGE FORM, BID
     Route: 048
     Dates: start: 20231214
  97. MIRCERA [Concomitant]
     Active Substance: METHOXY POLYETHYLENE GLYCOL-EPOETIN BETA
     Dosage: 50 MICROGRAM, Q2WEEKS
     Route: 050
     Dates: start: 20231221
  98. LONITEN [Concomitant]
     Active Substance: MINOXIDIL
     Dosage: 1 DOSAGE FORM, BID
     Route: 048
     Dates: start: 20231214
  99. NUTRILYTE [Concomitant]
     Active Substance: CALCIUM ACETATE\MAGNESIUM ACETATE\POTASSIUM ACETATE\POTASSIUM CHLORIDE\SODIUM ACETATE\SODIUM GLUCONA
     Dosage: 100 MILLILITER
     Route: 050
     Dates: start: 20230312
  100. NUTRILYTE [Concomitant]
     Active Substance: CALCIUM ACETATE\MAGNESIUM ACETATE\POTASSIUM ACETATE\POTASSIUM CHLORIDE\SODIUM ACETATE\SODIUM GLUCONA
     Dosage: 100 MILLILITER, 3/WEEK
     Route: 050
  101. PROCARDIA [Concomitant]
     Active Substance: NIFEDIPINE
     Dosage: 1 DOSAGE FORM, QD
     Route: 048
     Dates: start: 20230627
  102. ZOFRAN [Concomitant]
     Active Substance: ONDANSETRON HYDROCHLORIDE
     Dosage: 4 MILLIGRAM
     Route: 048
     Dates: start: 20230131
  103. SODIUM CHLORIDE;WATER [Concomitant]
     Dosage: UNK
     Route: 065
  104. SODIUM CHLORIDE;VANCOMYCIN HYDROCHLORIDE [Concomitant]
     Dosage: UNK
     Route: 065

REACTIONS (42)
  - Death [Fatal]
  - Vascular device infection [Unknown]
  - Infection [Unknown]
  - Diarrhoea [Unknown]
  - Weight decreased [Unknown]
  - Colitis [Unknown]
  - Clostridium difficile infection [Unknown]
  - Pulmonary oedema [Unknown]
  - Renal disorder [Recovering/Resolving]
  - Obstruction [Recovered/Resolved]
  - Peripheral swelling [Unknown]
  - Renal failure [Unknown]
  - Feeling abnormal [Unknown]
  - Muscular weakness [Unknown]
  - Illness [Unknown]
  - Gastrointestinal disorder [Unknown]
  - Malaise [Not Recovered/Not Resolved]
  - Pyrexia [Unknown]
  - Hypobarism [Unknown]
  - Dialysis related complication [Unknown]
  - Osteoporosis [Unknown]
  - Bone pain [Unknown]
  - Hepatic enzyme increased [Unknown]
  - Anaemia [Unknown]
  - Ileus [Recovered/Resolved]
  - Fluid retention [Unknown]
  - Haematoma [Unknown]
  - Vomiting [Recovered/Resolved]
  - Oedema peripheral [Unknown]
  - Wound infection [Recovered/Resolved]
  - Crohn^s disease [Recovering/Resolving]
  - Breast oedema [Unknown]
  - Eating disorder [Unknown]
  - Dysphonia [Unknown]
  - Anal fissure [Unknown]
  - Device issue [Unknown]
  - Appetite disorder [Unknown]
  - Product dose omission issue [Not Recovered/Not Resolved]
  - Product preparation issue [Unknown]
  - Inappropriate schedule of product administration [Unknown]
  - Headache [Unknown]
  - Cough [Unknown]

NARRATIVE: CASE EVENT DATE: 20240130
